FAERS Safety Report 4609165-X (Version None)
Quarter: 2005Q1

REPORT INFORMATION
  Report Type: 
  Country: None (occurrence: None)
  Receive Date: 20050314
  Receipt Date: 20050224
  Transmission Date: 20050727
  Serious: Yes (Hospitalization)
  Sender: FDA-Public Use
  Company Number: DSA_25989_2005

PATIENT
  Age: 61 Year
  Sex: Male

DRUGS (3)
  1. TAVOR [Suspect]
     Dosage: 1 MG Q DAY
     Dates: start: 20031210, end: 20040112
  2. SAROTEN ^BAYER VITAL^ [Suspect]
     Dosage: 125 MG Q DAY
     Dates: start: 20031230, end: 20040112
  3. ZYPREXA [Suspect]
     Dosage: 5 MG Q DAY
     Dates: start: 20031230, end: 20040112

REACTIONS (4)
  - CONSTIPATION [None]
  - DRUG INTERACTION [None]
  - DRY MOUTH [None]
  - TREMOR [None]
